FAERS Safety Report 14928253 (Version 1)
Quarter: 2018Q2

REPORT INFORMATION
  Report Type: Report from Study
  Country: US (occurrence: US)
  Receive Date: 20180523
  Receipt Date: 20180523
  Transmission Date: 20180711
  Serious: Yes (Other)
  Sender: FDA-Public Use
  Company Number: US-AMGEN-USASL2018066983

PATIENT
  Age: 72 Year
  Sex: Female

DRUGS (1)
  1. REPATHA [Suspect]
     Active Substance: EVOLOCUMAB
     Indication: HYPERCHOLESTEROLAEMIA
     Dosage: 140 MG, Q2WK
     Route: 065

REACTIONS (7)
  - Injection site streaking [Unknown]
  - Injection site mass [Unknown]
  - Muscle spasms [Unknown]
  - Muscle tightness [Unknown]
  - Cyanosis [Unknown]
  - Dyspnoea [Unknown]
  - Injection site pain [Recovered/Resolved]
